FAERS Safety Report 4482224-0 (Version None)
Quarter: 2004Q4

REPORT INFORMATION
  Report Type: 
  Country: None (occurrence: None)
  Receive Date: 20041019
  Receipt Date: 20041019
  Transmission Date: 20050328
  Serious: Yes (Death)
  Sender: FDA-Public Use
  Company Number: None

PATIENT
  Age: 73 Year
  Sex: Male
  Weight: 72.5755 kg

DRUGS (1)
  1. NEURONTIN [Suspect]
     Indication: PETIT MAL EPILEPSY
     Dosage: 900 3XDAILY ORAL
     Route: 048
     Dates: start: 19960415, end: 20040801

REACTIONS (1)
  - PANCREATIC CARCINOMA [None]
